FAERS Safety Report 16060931 (Version 1)
Quarter: 2019Q1

REPORT INFORMATION
  Report Type: Spontaneous
  Country: US (occurrence: US)
  Receive Date: 20190312
  Receipt Date: 20190312
  Transmission Date: 20190418
  Serious: Yes (Other)
  Sender: FDA-Public Use
  Company Number: US-ROCHE-2235636

PATIENT
  Age: 70 Year
  Sex: Male
  Weight: 77.18 kg

DRUGS (1)
  1. TECENTRIQ [Suspect]
     Active Substance: ATEZOLIZUMAB
     Indication: BLADDER CANCER
     Dosage: ONGOING: YES
     Route: 065
     Dates: start: 20181214

REACTIONS (2)
  - Inflammation [Not Recovered/Not Resolved]
  - Diverticulitis [Not Recovered/Not Resolved]

NARRATIVE: CASE EVENT DATE: 20181215
